FAERS Safety Report 25660449 (Version 1)
Quarter: 2025Q3

REPORT INFORMATION
  Report Type: Spontaneous
  Country: US (occurrence: US)
  Receive Date: 20250808
  Receipt Date: 20250808
  Transmission Date: 20251020
  Serious: Yes (Other)
  Sender: BAYER HEALTHCARE PHARMACEUTICALS INC.
  Company Number: US-BAYER-2025A104955

PATIENT
  Age: 59 Year
  Sex: Female

DRUGS (1)
  1. CIPROFLOXACIN [Suspect]
     Active Substance: CIPROFLOXACIN
     Indication: Diverticulitis
     Dates: start: 201909

REACTIONS (3)
  - Hallucination [Recovering/Resolving]
  - Tendon injury [Not Recovered/Not Resolved]
  - Abdominal pain upper [None]
